FAERS Safety Report 22142195 (Version 1)
Quarter: 2023Q1

REPORT INFORMATION
  Report Type: Spontaneous
  Country: CN (occurrence: CN)
  Receive Date: 20230327
  Receipt Date: 20230327
  Transmission Date: 20230418
  Serious: Yes (Disabling)
  Sender: FDA-Public Use
  Company Number: CN-PFIZER INC-PV202300055506

PATIENT
  Age: 36 Year
  Sex: Female

DRUGS (6)
  1. CYTARABINE [Suspect]
     Active Substance: CYTARABINE
     Indication: Acute leukaemia
     Dosage: 1 DF, 1X/DAY
     Route: 041
     Dates: start: 20230302, end: 20230305
  2. CYTARABINE [Suspect]
     Active Substance: CYTARABINE
     Dosage: 1 DF, 1X/DAY
     Route: 041
     Dates: start: 20230306, end: 20230307
  3. CYTARABINE [Suspect]
     Active Substance: CYTARABINE
     Dosage: 1.5 DF, 1X/DAY
     Route: 041
     Dates: start: 20230309, end: 20230311
  4. SODIUM CHLORIDE [Concomitant]
     Active Substance: SODIUM CHLORIDE
     Indication: Vehicle solution use
     Dosage: 1 DF, 1X/DAY
     Route: 041
     Dates: start: 20230302, end: 20230305
  5. SODIUM CHLORIDE [Concomitant]
     Active Substance: SODIUM CHLORIDE
     Dosage: 1 DF, 1X/DAY
     Route: 041
     Dates: start: 20230306, end: 20230307
  6. SODIUM CHLORIDE [Concomitant]
     Active Substance: SODIUM CHLORIDE
     Dosage: 1 DF, 1X/DAY
     Route: 041
     Dates: start: 20230309, end: 20230311

REACTIONS (2)
  - White blood cell count increased [Unknown]
  - Myelosuppression [Unknown]

NARRATIVE: CASE EVENT DATE: 20230305
